FAERS Safety Report 8479449-6 (Version None)
Quarter: 2012Q2

REPORT INFORMATION
  Report Type: 
  Country: None (occurrence: None)
  Receive Date: 20120402
  Receipt Date: 20120116
  Transmission Date: 20120825
  Serious: Yes (Life-Threatening)
  Sender: FDA-Public Use
  Company Number: 2012ST000056

PATIENT
  Age: 22 Month
  Sex: Male
  Weight: 13 kg

DRUGS (1)
  1. ONCASPAR [Suspect]
     Indication: ACUTE LYMPHOCYTIC LEUKAEMIA
     Dosage: 1350 IU;X1;IV
     Route: 042
     Dates: start: 20120116, end: 20120116

REACTIONS (5)
  - COUGH [None]
  - AGITATION [None]
  - ANAPHYLACTIC REACTION [None]
  - ERYTHEMA [None]
  - DYSPNOEA [None]
